FAERS Safety Report 20947075 (Version 5)
Quarter: 2023Q1

REPORT INFORMATION
  Report Type: Report from Study
  Country: CN (occurrence: None)
  Receive Date: 20220610
  Receipt Date: 20230331
  Transmission Date: 20230417
  Serious: Yes (Death, Life-Threatening, Hospitalization, Other)
  Sender: FDA-Public Use
  Company Number: 2022A161059

PATIENT
  Age: 24548 Day
  Sex: Male

DRUGS (46)
  1. DURVALUMAB [Suspect]
     Active Substance: DURVALUMAB
     Indication: Non-small cell lung cancer
     Route: 042
     Dates: start: 20220311, end: 20220311
  2. DURVALUMAB [Suspect]
     Active Substance: DURVALUMAB
     Indication: Non-small cell lung cancer
     Route: 042
     Dates: start: 20220401, end: 20220401
  3. TREMELIMUMAB [Suspect]
     Active Substance: TREMELIMUMAB
     Indication: Non-small cell lung cancer
     Route: 042
     Dates: start: 20220311, end: 20220311
  4. TREMELIMUMAB [Suspect]
     Active Substance: TREMELIMUMAB
     Indication: Non-small cell lung cancer
     Route: 042
     Dates: start: 20220401, end: 20220401
  5. GEMCITABINE [Suspect]
     Active Substance: GEMCITABINE
     Indication: Non-small cell lung cancer
     Route: 042
     Dates: start: 20220311, end: 20220311
  6. GEMCITABINE [Suspect]
     Active Substance: GEMCITABINE
     Indication: Non-small cell lung cancer
     Route: 042
     Dates: start: 20220318, end: 20220318
  7. GEMCITABINE [Suspect]
     Active Substance: GEMCITABINE
     Indication: Non-small cell lung cancer
     Route: 042
     Dates: start: 20220401, end: 20220401
  8. GEMCITABINE [Suspect]
     Active Substance: GEMCITABINE
     Indication: Non-small cell lung cancer
     Route: 042
     Dates: start: 20220408, end: 20220408
  9. CISPLATIN [Suspect]
     Active Substance: CISPLATIN
     Indication: Non-small cell lung cancer
     Route: 042
     Dates: start: 20220311, end: 20220311
  10. CISPLATIN [Suspect]
     Active Substance: CISPLATIN
     Indication: Non-small cell lung cancer
     Route: 042
     Dates: start: 20220401, end: 20220401
  11. CISPLATIN [Suspect]
     Active Substance: CISPLATIN
     Indication: Non-small cell lung cancer
     Route: 042
     Dates: start: 20220402, end: 20220402
  12. CISPLATIN [Suspect]
     Active Substance: CISPLATIN
     Indication: Non-small cell lung cancer
     Route: 042
     Dates: start: 20220312, end: 20220312
  13. CARBOPLATIN [Suspect]
     Active Substance: CARBOPLATIN
     Indication: Non-small cell lung cancer
     Route: 042
  14. MOTIDINE IS USED FOR INJECTION [Concomitant]
     Indication: Gastritis
     Route: 042
     Dates: start: 20220401, end: 20220408
  15. RUTOSIDE/STRONTIUM CITRATE/NICOTINAMIDE/HESPERIDIN/NICOTINIC ACID/CALC [Concomitant]
     Indication: Prophylaxis
     Route: 042
     Dates: start: 20220401, end: 20220408
  16. RUTOSIDE/STRONTIUM CITRATE/NICOTINAMIDE/HESPERIDIN/NICOTINIC ACID/CALC [Concomitant]
     Indication: Prophylaxis
     Route: 042
     Dates: start: 20220421, end: 20220424
  17. FUROSEMIDE [Concomitant]
     Active Substance: FUROSEMIDE
     Indication: Oedema peripheral
     Dosage: 20.0MG ONCE/SINGLE ADMINISTRATION
     Route: 042
     Dates: start: 20220401, end: 20220402
  18. FUROSEMIDE [Concomitant]
     Active Substance: FUROSEMIDE
     Indication: Polyuria
     Dosage: 20.0MG ONCE/SINGLE ADMINISTRATION
     Route: 042
     Dates: start: 20220401, end: 20220402
  19. METOCLOPRAMIDE HYDROCHLORIDE [Concomitant]
     Active Substance: METOCLOPRAMIDE HYDROCHLORIDE
     Indication: Vomiting
     Dosage: 20.0MG ONCE/SINGLE ADMINISTRATION
     Route: 030
     Dates: start: 20220408, end: 20220408
  20. METOCLOPRAMIDE HYDROCHLORIDE [Concomitant]
     Active Substance: METOCLOPRAMIDE HYDROCHLORIDE
     Indication: Vomiting
     Dosage: 20.0MG ONCE/SINGLE ADMINISTRATION
     Route: 030
     Dates: start: 20220405, end: 20220406
  21. TROPISETRON HYDROCHLORIDE INJECTION [Concomitant]
     Indication: Vomiting
     Dosage: 5.0MG ONCE/SINGLE ADMINISTRATION
     Route: 042
     Dates: start: 20220401, end: 20220402
  22. TROPISETRON HYDROCHLORIDE INJECTION [Concomitant]
     Indication: Prophylaxis of nausea and vomiting
     Dosage: 5.0MG ONCE/SINGLE ADMINISTRATION
     Route: 042
     Dates: start: 20220401, end: 20220402
  23. TROPISETRON HYDROCHLORIDE INJECTION [Concomitant]
     Indication: Vomiting
     Dosage: 5.0MG ONCE/SINGLE ADMINISTRATION
     Route: 042
     Dates: start: 20220408, end: 20220408
  24. TROPISETRON HYDROCHLORIDE INJECTION [Concomitant]
     Indication: Prophylaxis of nausea and vomiting
     Dosage: 5.0MG ONCE/SINGLE ADMINISTRATION
     Route: 042
     Dates: start: 20220408, end: 20220408
  25. COW BEZOAR/LONICERA JAPONICA FLOWER BUD/BORNEOL/REHMANNIA GLUTINOSA RO [Concomitant]
     Indication: Vomiting
     Dosage: 150.0MG ONCE/SINGLE ADMINISTRATION
     Route: 042
     Dates: start: 20220408, end: 20220408
  26. COW BEZOAR/LONICERA JAPONICA FLOWER BUD/BORNEOL/REHMANNIA GLUTINOSA RO [Concomitant]
     Indication: Prophylaxis of nausea and vomiting
     Dosage: 150.0MG ONCE/SINGLE ADMINISTRATION
     Route: 042
     Dates: start: 20220408, end: 20220408
  27. ESTAZOLAM [Concomitant]
     Active Substance: ESTAZOLAM
     Indication: Insomnia
     Dosage: 2.0MG ONCE/SINGLE ADMINISTRATION
     Route: 048
     Dates: start: 20220315
  28. VONOPRAZAN FUMARATE  TABLET [Concomitant]
     Indication: Vomiting
     Dosage: 20.0MG ONCE/SINGLE ADMINISTRATION
     Route: 048
     Dates: start: 20220324, end: 20220325
  29. HUMAN GRANULOCYTE-STIMUL ATING FACTOR INJECTION [Concomitant]
     Indication: White blood cell count decreased
     Dosage: 300.0UG ONCE/SINGLE ADMINISTRATION
     Route: 058
     Dates: start: 20220330, end: 20220330
  30. HUMAN GRANULOCYTE-STIMUL ATING FACTOR INJECTION [Concomitant]
     Indication: White blood cell count
     Dosage: 300.0UG ONCE/SINGLE ADMINISTRATION
     Route: 058
     Dates: start: 20220330, end: 20220330
  31. HUMAN GRANULOCYTE-STIMUL ATING FACTOR INJECTION [Concomitant]
     Indication: White blood cell count decreased
     Dosage: 250.0UG ONCE/SINGLE ADMINISTRATION
     Route: 058
     Dates: start: 20220404, end: 20220404
  32. HUMAN GRANULOCYTE-STIMUL ATING FACTOR INJECTION [Concomitant]
     Indication: White blood cell count
     Dosage: 250.0UG ONCE/SINGLE ADMINISTRATION
     Route: 058
     Dates: start: 20220404, end: 20220404
  33. PROMETHAZINE [Concomitant]
     Active Substance: PROMETHAZINE HYDROCHLORIDE
     Indication: Acne
     Route: 030
     Dates: start: 20220406, end: 20220408
  34. PROMETHAZINE [Concomitant]
     Active Substance: PROMETHAZINE HYDROCHLORIDE
     Indication: Hypersensitivity
     Route: 030
     Dates: start: 20220406, end: 20220408
  35. PROMETHAZINE [Concomitant]
     Active Substance: PROMETHAZINE HYDROCHLORIDE
     Indication: Antiallergic therapy
     Route: 030
     Dates: start: 20220406, end: 20220408
  36. PROMETHAZINE [Concomitant]
     Active Substance: PROMETHAZINE HYDROCHLORIDE
     Indication: Acne
     Route: 030
     Dates: start: 20220421, end: 20220421
  37. PROMETHAZINE [Concomitant]
     Active Substance: PROMETHAZINE HYDROCHLORIDE
     Indication: Hypersensitivity
     Route: 030
     Dates: start: 20220421, end: 20220421
  38. PROMETHAZINE [Concomitant]
     Active Substance: PROMETHAZINE HYDROCHLORIDE
     Indication: Antiallergic therapy
     Route: 030
     Dates: start: 20220421, end: 20220421
  39. LORATADINE [Concomitant]
     Active Substance: LORATADINE
     Indication: Rash
     Dosage: 10.0MG ONCE/SINGLE ADMINISTRATION
     Route: 048
     Dates: start: 20220409, end: 20220418
  40. HYDROCORTISONE BUTYRATE OINTMENT [Concomitant]
     Indication: Acne
     Dosage: 1.0000 APPLICATION TWO TIMES A DAY
     Route: 003
     Dates: start: 20220422, end: 20220424
  41. FAMOTIDINE [Concomitant]
     Active Substance: FAMOTIDINE
     Indication: Gastritis
     Route: 042
     Dates: start: 20220421, end: 20220424
  42. METHYLPREDNISOLON E SODIUM SUCCINATE FOR INJECTION [Concomitant]
     Indication: Rash
     Route: 042
     Dates: start: 20220422, end: 20220424
  43. METHYLPREDNISOLON E SODIUM SUCCINATE FOR INJECTION [Concomitant]
     Indication: Hormone therapy
     Route: 042
     Dates: start: 20220422, end: 20220424
  44. METHYLPREDNISOLON E SODIUM SUCCINATE FOR INJECTION [Concomitant]
     Indication: Immunology test
     Route: 042
     Dates: start: 20220422, end: 20220424
  45. CODEINE PHOSPHATE [Concomitant]
     Active Substance: CODEINE PHOSPHATE
     Indication: Cough
     Route: 048
     Dates: start: 20220422, end: 20220424
  46. RIVAROXABAN TABLETS [Concomitant]
     Indication: Thrombolysis
     Route: 048
     Dates: start: 20220410, end: 20220413

REACTIONS (3)
  - Dermatitis acneiform [Not Recovered/Not Resolved]
  - Immune-mediated lung disease [Not Recovered/Not Resolved]
  - Death [Fatal]

NARRATIVE: CASE EVENT DATE: 20220406
